FAERS Safety Report 4336542-7 (Version None)
Quarter: 2004Q2

REPORT INFORMATION
  Report Type: 
  Country: None (occurrence: None)
  Receive Date: 20040407
  Receipt Date: 20040318
  Transmission Date: 20050107
  Serious: Yes (Other)
  Sender: FDA-Public Use
  Company Number: US_031199085

PATIENT
  Age: 74 Year
  Sex: Female

DRUGS (7)
  1. FORTEO [Suspect]
     Indication: COMPRESSION FRACTURE
     Dosage: 20 UG
     Dates: start: 20030201
  2. HUMALOG [Suspect]
     Indication: DIABETES MELLITUS
  3. EVISTA [Suspect]
     Dates: start: 20020101
  4. LANTUS (INSLULIN GLARGINE) [Concomitant]
  5. OXYBUTYNIN HYDROCHLORIDE [Concomitant]
  6. FUROSEMIDE [Concomitant]
  7. LEVOTHYROXINE SODIUM [Concomitant]

REACTIONS (5)
  - BACK INJURY [None]
  - BLOOD GLUCOSE DECREASED [None]
  - ERYTHEMA [None]
  - LOSS OF CONSCIOUSNESS [None]
  - OEDEMA PERIPHERAL [None]
